FAERS Safety Report 19502002 (Version 1)
Quarter: 2021Q3

REPORT INFORMATION
  Report Type: Spontaneous
  Country: US (occurrence: US)
  Receive Date: 20210707
  Receipt Date: 20210707
  Transmission Date: 20211014
  Serious: No
  Sender: FDA-Public Use
  Company Number: None

PATIENT
  Age: 28 Year
  Sex: Male
  Weight: 74.25 kg

DRUGS (1)
  1. DEXTROAMPHET SACCHARAT, AMPHET ASPARTATE, DEXTROAMPHET SULFATE AND AMPHET SULFAT [Suspect]
     Active Substance: AMPHETAMINE ASPARTATE\AMPHETAMINE SULFATE\DEXTROAMPHETAMINE SACCHARATE\DEXTROAMPHETAMINE SULFATE
     Indication: ATTENTION DEFICIT HYPERACTIVITY DISORDER
     Dosage: ?          QUANTITY:1 TABLET(S);?
     Route: 048
     Dates: start: 20200324, end: 20210707

REACTIONS (11)
  - Depression [None]
  - Product substitution issue [None]
  - Confusional state [None]
  - Headache [None]
  - Disturbance in attention [None]
  - Fatigue [None]
  - Attention deficit hyperactivity disorder [None]
  - Product quality issue [None]
  - Abdominal pain upper [None]
  - Pain [None]
  - Irritability [None]

NARRATIVE: CASE EVENT DATE: 20210621
